FAERS Safety Report 9499812 (Version 2)
Quarter: 2013Q4

REPORT INFORMATION
  Report Type: Spontaneous
  Country: GB (occurrence: GB)
  Receive Date: 20130905
  Receipt Date: 20131031
  Transmission Date: 20140711
  Serious: Yes (Other)
  Sender: FDA-Public Use
  Company Number: GB-JNJFOC-20130817039

PATIENT
  Age: 52 Year
  Sex: Female

DRUGS (3)
  1. STELARA [Suspect]
     Indication: PSORIASIS
     Dosage: AT WEEK 0 AND 4
     Route: 058
  2. LANSOPRAZOLE [Concomitant]
     Indication: ARTHRITIS
     Route: 065
     Dates: end: 201303
  3. SOLPADOL [Concomitant]
     Indication: HIATUS HERNIA
     Route: 065
     Dates: end: 201303

REACTIONS (1)
  - Liver function test abnormal [Recovered/Resolved]
